FAERS Safety Report 8121124-1 (Version None)
Quarter: 2012Q1

REPORT INFORMATION
  Report Type: 
  Country: None (occurrence: None)
  Receive Date: 20120208
  Receipt Date: 20120127
  Transmission Date: 20120608
  Serious: Yes (Other)
  Sender: FDA-Public Use
  Company Number: JP-BRISTOL-MYERS SQUIBB COMPANY-16383317

PATIENT
  Age: 30 Year
  Sex: Male

DRUGS (12)
  1. ZYPREXA [Concomitant]
     Dates: start: 20111019, end: 20111101
  2. BEZAFIBRATE [Concomitant]
     Dosage: TABS
     Dates: start: 20111018
  3. SENNOSIDE A+B [Concomitant]
  4. FLUNITRAZEPAM [Concomitant]
     Dosage: TABS
     Dates: start: 20111018
  5. QUAZEPAM [Concomitant]
     Dosage: TABS
     Dates: start: 20111019
  6. BUFFERIN [Concomitant]
     Dosage: TABS
     Dates: start: 20111026, end: 20111206
  7. SELBEX [Concomitant]
     Dates: start: 20111026, end: 20111206
  8. PHENOBARBITAL TAB [Concomitant]
     Dates: start: 20111026
  9. PROMETHAZINE HCL [Concomitant]
     Dates: start: 20111019
  10. HALOPERIDOL [Suspect]
     Indication: SCHIZOPHRENIA
     Dosage: INJECTION ON 26OCT11-01NOV11:15MG:7DAYS. 18MG/D 2NOV11-6DEC11:35DAYS
     Route: 042
     Dates: start: 20111026, end: 20111206
  11. NITRAZEPAM [Concomitant]
     Dates: start: 20111029, end: 20111108
  12. ABILIFY [Suspect]
     Indication: SCHIZOPHRENIA
     Dosage: 12MG/DY 18OCT11-19OCT11:2DAYS 30MG/DY 20OCT11-ONG
     Route: 048
     Dates: start: 20111018

REACTIONS (3)
  - URINARY RETENTION [None]
  - URINARY TRACT INFECTION [None]
  - CONSTIPATION [None]
